FAERS Safety Report 6284903-1 (Version None)
Quarter: 2009Q3

REPORT INFORMATION
  Report Type: 
  Country: None (occurrence: None)
  Receive Date: 20090727
  Receipt Date: 20090707
  Transmission Date: 20100115
  Serious: Yes (Hospitalization, Other)
  Sender: FDA-Public Use
  Company Number: US-ABBOTT-09P-163-0583781-00

PATIENT
  Sex: Female
  Weight: 98.972 kg

DRUGS (6)
  1. SYNTHROID [Suspect]
     Indication: AUTOIMMUNE THYROIDITIS
     Route: 048
     Dates: start: 19990101
  2. NEXIUM [Concomitant]
     Indication: GASTROOESOPHAGEAL REFLUX DISEASE
  3. ASACOL [Concomitant]
     Indication: COLITIS ULCERATIVE
  4. TOPIRAMATE [Concomitant]
     Indication: AFFECTIVE DISORDER
  5. TOPIRAMATE [Concomitant]
     Indication: DEPRESSION
  6. XANAX XR [Concomitant]
     Indication: ANXIETY

REACTIONS (12)
  - ABASIA [None]
  - COELIAC DISEASE [None]
  - EXOSTOSIS [None]
  - GOITRE [None]
  - INTERVERTEBRAL DISC PROTRUSION [None]
  - KNEE OPERATION [None]
  - MOBILITY DECREASED [None]
  - PREGNANCY [None]
  - SPINAL CORD DISORDER [None]
  - VERTIGO [None]
  - WEIGHT DECREASED [None]
  - WEIGHT INCREASED [None]
